FAERS Safety Report 15839967 (Version 1)
Quarter: 2019Q1

REPORT INFORMATION
  Report Type: Spontaneous
  Country: US (occurrence: US)
  Receive Date: 20190117
  Receipt Date: 20190117
  Transmission Date: 20190417
  Serious: Yes (Other)
  Sender: FDA-Public Use
  Company Number: US-LUNDBECK-DKLU2059353

PATIENT
  Age: 27 Year
  Sex: Female

DRUGS (4)
  1. ONFI [Suspect]
     Active Substance: CLOBAZAM
     Indication: PARTIAL SEIZURES
     Route: 048
     Dates: start: 20160126
  2. ONFI [Suspect]
     Active Substance: CLOBAZAM
     Indication: STATUS EPILEPTICUS
  3. ONFI [Suspect]
     Active Substance: CLOBAZAM
     Indication: FOCAL DYSCOGNITIVE SEIZURES
  4. ONFI [Suspect]
     Active Substance: CLOBAZAM
     Indication: EPILEPSY

REACTIONS (2)
  - Drug withdrawal convulsions [Unknown]
  - Product dose omission [Unknown]

NARRATIVE: CASE EVENT DATE: 201901
